FAERS Safety Report 20572156 (Version 1)
Quarter: 2022Q1

REPORT INFORMATION
  Report Type: Report from Study
  Country: AU (occurrence: AU)
  Receive Date: 20220309
  Receipt Date: 20220309
  Transmission Date: 20220423
  Serious: Yes (Hospitalization)
  Sender: FDA-Public Use
  Company Number: AU-MYLANLABS-2022M1018104

PATIENT
  Age: 23 Year
  Sex: Female
  Weight: 57 kg

DRUGS (2)
  1. DIAZEPAM [Interacting]
     Active Substance: DIAZEPAM
     Indication: Product used for unknown indication
     Dosage: 250 MILLIGRAM
     Route: 048
  2. POTASSIUM CHLORIDE [Interacting]
     Active Substance: POTASSIUM CHLORIDE
     Indication: Product used for unknown indication
     Dosage: 120000 MILLIGRAM (SUSTAINED-RELEASE TABLET)
     Route: 048

REACTIONS (8)
  - Drug interaction [Unknown]
  - Overdose [Unknown]
  - Toxicity to various agents [Unknown]
  - Neuromyopathy [Unknown]
  - Electrocardiogram abnormal [Unknown]
  - Hyperkalaemia [Unknown]
  - Bezoar [Unknown]
  - Gastrointestinal disorder [Unknown]
